FAERS Safety Report 5223645-8 (Version None)
Quarter: 2007Q1

REPORT INFORMATION
  Report Type: 
  Country: None (occurrence: None)
  Receive Date: 20070130
  Receipt Date: 20070116
  Transmission Date: 20070707
  Serious: Yes (Hospitalization)
  Sender: FDA-Public Use
  Company Number: FR-SANOFI-SYNTHELABO-A02200700189

PATIENT
  Age: 30 Year
  Sex: Female

DRUGS (4)
  1. CEBUTID [Concomitant]
     Indication: DRUG USE FOR UNKNOWN INDICATION
     Dosage: UNK
     Route: 048
     Dates: start: 20050601, end: 20050601
  2. STATINS NOS [Concomitant]
     Indication: TYPE IIA HYPERLIPIDAEMIA
     Dosage: UNK
     Route: 065
     Dates: start: 20030101
  3. PLAVIX [Suspect]
     Indication: CORONARY ARTERIAL STENT INSERTION
     Route: 048
     Dates: start: 20030101, end: 20050601
  4. PLAVIX [Suspect]
     Route: 048
     Dates: start: 20050601

REACTIONS (2)
  - ANAEMIA [None]
  - INTESTINAL INFARCTION [None]
